FAERS Safety Report 19472509 (Version 1)
Quarter: 2021Q2

REPORT INFORMATION
  Report Type: Spontaneous
  Country: FR (occurrence: FR)
  Receive Date: 20210629
  Receipt Date: 20210629
  Transmission Date: 20210717
  Serious: Yes (Other)
  Sender: FDA-Public Use
  Company Number: FR-US-PROVELL PHARMACEUTICALS LLC-9247427

PATIENT
  Sex: Female

DRUGS (1)
  1. LEVOTHYROX [Suspect]
     Active Substance: LEVOTHYROXINE
     Indication: POST PROCEDURAL HYPOTHYROIDISM

REACTIONS (14)
  - Fall [Unknown]
  - Myalgia [Unknown]
  - Tachycardia [Not Recovered/Not Resolved]
  - Panic attack [Unknown]
  - Weight decreased [Unknown]
  - Femur fracture [Unknown]
  - Tinnitus [Unknown]
  - Blood thyroid stimulating hormone abnormal [Unknown]
  - Amnesia [Unknown]
  - Alopecia [Unknown]
  - Dizziness [Unknown]
  - Abdominal pain [Unknown]
  - Vitamin D deficiency [Unknown]
  - Insomnia [Unknown]

NARRATIVE: CASE EVENT DATE: 201708
